FAERS Safety Report 7020781-0 (Version None)
Quarter: 2010Q3

REPORT INFORMATION
  Report Type: 
  Country: None (occurrence: None)
  Receive Date: 20100929
  Receipt Date: 20100923
  Transmission Date: 20110219
  Serious: Yes (Other)
  Sender: FDA-Public Use
  Company Number: FR-PFIZER INC-2010120691

PATIENT
  Age: 85 Year
  Sex: Male

DRUGS (11)
  1. TAHOR [Suspect]
     Dosage: 80 MG, 1X/DAY
     Route: 048
  2. GABAPENTIN [Suspect]
     Dosage: 100 MG, 3X/DAY
     Route: 048
  3. DILTIAZEM HYDROCHLORIDE [Suspect]
     Dosage: 300 MG, 1X/DAY
     Route: 048
  4. ESTRACYT [Suspect]
     Indication: PROSTATE CANCER
     Dosage: 140 MG, 1X/DAY
     Route: 048
     Dates: start: 20100101
  5. CAPTOPRIL [Suspect]
     Indication: HYPERTENSION
     Dosage: 50 MG, 3X/DAY
     Route: 048
     Dates: end: 20100601
  6. FLUDEX [Suspect]
     Indication: HYPERTENSION
     Dosage: 1.5 MG, 1X/DAY
     Route: 048
  7. AERIUS [Suspect]
     Dosage: 5 MG, 1X/DAY
     Route: 048
  8. GLUCOR [Suspect]
     Indication: DIABETES MELLITUS
     Dosage: 50 MG, 3X/DAY
     Route: 048
  9. NOVONORM [Suspect]
     Indication: DIABETES MELLITUS
     Dosage: 4 MG, 3X/DAY
     Route: 048
  10. ALLOPURINOL [Suspect]
     Dosage: 200 MG, 1X/DAY
     Route: 048
  11. LANTUS [Suspect]
     Indication: DIABETES MELLITUS
     Dosage: 18 IU, 1X/DAY
     Route: 058

REACTIONS (1)
  - FACE OEDEMA [None]
